FAERS Safety Report 17827894 (Version 5)
Quarter: 2020Q4

REPORT INFORMATION
  Report Type: Spontaneous
  Country: US (occurrence: US)
  Receive Date: 20200527
  Receipt Date: 20201103
  Transmission Date: 20210113
  Serious: Yes (Other)
  Sender: FDA-Public Use
  Company Number: US-SA-2020SA124660

PATIENT

DRUGS (2)
  1. DUPIXENT [Suspect]
     Active Substance: DUPILUMAB
     Dosage: 300 MG, QOW
     Route: 058
     Dates: start: 20201026
  2. DUPIXENT [Suspect]
     Active Substance: DUPILUMAB
     Indication: DERMATITIS ATOPIC
     Dosage: 300 MG, QOW
     Route: 058
     Dates: start: 20200421, end: 202009

REACTIONS (8)
  - Fatigue [Unknown]
  - Visual impairment [Not Recovered/Not Resolved]
  - Quarantine [Unknown]
  - COVID-19 [Unknown]
  - Gingival bleeding [Not Recovered/Not Resolved]
  - Discomfort [Unknown]
  - SARS-CoV-2 test positive [Unknown]
  - Sinusitis [Recovered/Resolved]

NARRATIVE: CASE EVENT DATE: 2020
